FAERS Safety Report 9678016 (Version 1)
Quarter: 2013Q4

REPORT INFORMATION
  Report Type: Spontaneous
  Country: JP (occurrence: JP)
  Receive Date: 20131108
  Receipt Date: 20131108
  Transmission Date: 20140711
  Serious: Yes (Other)
  Sender: FDA-Public Use
  Company Number: JP-ASTRAZENECA-2013SE80504

PATIENT
  Age: 70 Year
  Sex: Female

DRUGS (2)
  1. ANAPEINE [Suspect]
     Indication: SPINAL ANAESTHESIA
     Route: 008
  2. ADRENALINE [Suspect]
     Indication: SPINAL ANAESTHESIA
     Route: 008

REACTIONS (2)
  - Movement disorder [Recovered/Resolved]
  - Sensory disturbance [Not Recovered/Not Resolved]
